FAERS Safety Report 14162711 (Version 1)
Quarter: 2017Q4

REPORT INFORMATION
  Report Type: Spontaneous
  Country: FR (occurrence: FR)
  Receive Date: 20171106
  Receipt Date: 20171106
  Transmission Date: 20180321
  Serious: Yes (Hospitalization)
  Sender: FDA-Public Use
  Company Number: FR-TEVA-820548ROM

PATIENT
  Age: 50 Year
  Sex: Female
  Weight: 62 kg

DRUGS (5)
  1. FLUOROURACILE ACCORD [Suspect]
     Active Substance: FLUOROURACIL
     Indication: COLON CANCER
     Dosage: FOURTH COURSE OF FOLFOX PROTOCOL; LAST DOSE PRIOR TO AE: 29-AUG-2017
     Route: 041
     Dates: start: 20170829, end: 20170829
  2. VENOFER [Suspect]
     Active Substance: IRON SUCROSE
     Indication: ANAEMIA
     Route: 041
     Dates: start: 20170829, end: 20170829
  3. OXALIPLATINE TEVA [Suspect]
     Active Substance: OXALIPLATIN
     Indication: COLON CANCER
     Dosage: FOURTH COURSE OF FOLFOX PROTOCOL; LAST DOSE PRIOR TO AE:29-AUG-2017
     Route: 041
     Dates: start: 20170829, end: 20170829
  4. LEVOFOLINATE DE CALCIUM ZENTIVA [Suspect]
     Active Substance: LEVOLEUCOVORIN CALCIUM
     Indication: DRUG TOXICITY PROPHYLAXIS
     Dosage: FOURTH COURSE OF FOLFOX PROTOCOL; LAST DOSE PRIOR TO AE: 29-AUG-2017
     Route: 041
     Dates: start: 20170829, end: 20170829
  5. FLUOROURACILE ACCORD [Suspect]
     Active Substance: FLUOROURACIL
     Dosage: FOURTH COURSE OF FOLFOX PROTOCOL; LAST DOSE PRIOR TO AE: 29-AUG-2017
     Route: 041
     Dates: start: 20170829

REACTIONS (1)
  - Tonic clonic movements [Recovered/Resolved]

NARRATIVE: CASE EVENT DATE: 20170830
